FAERS Safety Report 7240651-2 (Version None)
Quarter: 2011Q1

REPORT INFORMATION
  Report Type: 
  Country: None (occurrence: None)
  Receive Date: 20110124
  Receipt Date: 20100901
  Transmission Date: 20110831
  Serious: No
  Sender: FDA-Public Use
  Company Number: US-KINGPHARMUSA00001-K201001113

PATIENT
  Age: 5 Year
  Sex: Male

DRUGS (3)
  1. PULMICORT [Concomitant]
     Indication: SEASONAL ALLERGY
     Dosage: UNK
  2. EPIPEN JR. [Suspect]
     Indication: FOOD ALLERGY
     Dosage: 0.15 MG, TWICE
     Route: 030
     Dates: start: 20100819, end: 20100819
  3. ALBUTEROL [Concomitant]
     Indication: SEASONAL ALLERGY
     Dosage: UNK

REACTIONS (3)
  - INCORRECT DRUG ADMINISTRATION DURATION [None]
  - COUGH [None]
  - VOMITING [None]
